FAERS Safety Report 7326148-X (Version None)
Quarter: 2011Q1

REPORT INFORMATION
  Report Type: 
  Country: None (occurrence: None)
  Receive Date: 20110302
  Receipt Date: 20110216
  Transmission Date: 20110831
  Serious: Yes (Death, Hospitalization)
  Sender: FDA-Public Use
  Company Number: US-ROCHE-762258

PATIENT
  Sex: Female
  Weight: 53.6 kg

DRUGS (21)
  1. PACLITAXEL [Suspect]
     Route: 042
     Dates: start: 20100628, end: 20100628
  2. CARBOPLATIN [Suspect]
     Route: 042
     Dates: start: 20100628, end: 20100628
  3. RESTORIL [Concomitant]
     Dates: start: 20100608
  4. ZOFRAN [Concomitant]
     Dates: start: 20100628
  5. BENADRYL [Concomitant]
     Dates: start: 20100628
  6. MEGACE [Concomitant]
     Dates: start: 20100608
  7. ZANTAC [Concomitant]
     Dates: start: 20100628
  8. POTASSIUM [Concomitant]
  9. TEMAZEPAM [Concomitant]
  10. HYDROXYZINE [Concomitant]
  11. ASPIRIN [Concomitant]
     Dates: start: 20100408
  12. ALBUTEROL [Concomitant]
     Dates: start: 20100408
  13. BEVACIZUMAB [Suspect]
     Route: 042
     Dates: start: 20100628, end: 20100628
  14. ZOMETA [Concomitant]
     Dates: start: 20100628
  15. LISINOPRIL [Concomitant]
  16. ADVAIR DISKUS 100/50 [Concomitant]
  17. DECADRON [Concomitant]
     Dates: start: 20100628
  18. AMLODIPINE BESYLATE [Concomitant]
  19. HCT [Concomitant]
     Dates: start: 20100608
  20. VISTARIL [Concomitant]
     Dates: start: 20100412
  21. NUCYNTA [Concomitant]

REACTIONS (5)
  - VOMITING [None]
  - DEHYDRATION [None]
  - NEUTROPENIA [None]
  - DEATH [None]
  - DIARRHOEA [None]
